FAERS Safety Report 17956298 (Version 1)
Quarter: 2020Q2

REPORT INFORMATION
  Report Type: Spontaneous
  Country: CA (occurrence: CA)
  Receive Date: 20200629
  Receipt Date: 20200629
  Transmission Date: 20200714
  Serious: Yes (Other)
  Sender: FDA-Public Use
  Company Number: CA-ACCORD-187141

PATIENT
  Age: 51 Year

DRUGS (2)
  1. PREDNISONE. [Concomitant]
     Active Substance: PREDNISONE
     Indication: PRODUCT USED FOR UNKNOWN INDICATION
  2. MYCOPHENOLIC ACID. [Suspect]
     Active Substance: MYCOPHENOLIC ACID
     Indication: GRAFT VERSUS HOST DISEASE IN SKIN
     Dosage: 2 EVERY 1 DAYS
     Route: 048

REACTIONS (3)
  - Chronic graft versus host disease [Recovered/Resolved]
  - Graft versus host disease in lung [Recovered/Resolved]
  - Pulmonary air leakage [Recovered/Resolved]
